FAERS Safety Report 6965475-2 (Version None)
Quarter: 2010Q3

REPORT INFORMATION
  Report Type: 
  Country: None (occurrence: None)
  Receive Date: 20100903
  Receipt Date: 20100826
  Transmission Date: 20110219
  Serious: Yes (Hospitalization)
  Sender: FDA-Public Use
  Company Number: B0671688A

PATIENT
  Sex: Male

DRUGS (12)
  1. AMOXICILLIN [Suspect]
     Dosage: 1G FOUR TIMES PER DAY
     Route: 048
     Dates: start: 20100713, end: 20100726
  2. AUGMENTIN '125' [Suspect]
     Dosage: 1G FOUR TIMES PER DAY
     Route: 048
     Dates: start: 20100713, end: 20100726
  3. TRAMADOL HCL [Suspect]
     Dosage: 100MG THREE TIMES PER DAY
     Route: 048
     Dates: start: 20100702, end: 20100703
  4. ACUPAN [Suspect]
     Dosage: 1UNIT SIX TIMES PER DAY
     Route: 042
     Dates: start: 20100702, end: 20100702
  5. TIAPRIDAL [Suspect]
     Dosage: 100MG TWICE PER DAY
     Route: 048
     Dates: start: 20100704, end: 20100726
  6. DURAGESIC-100 [Suspect]
     Dosage: 50MCG EVERY 3 DAYS
     Route: 062
     Dates: start: 20100601, end: 20100726
  7. DRIPTANE [Concomitant]
     Dosage: 5MG PER DAY
     Route: 048
     Dates: end: 20100726
  8. SEROPLEX [Concomitant]
     Route: 065
  9. SYMBICORT [Concomitant]
     Route: 065
  10. AERIUS [Concomitant]
     Route: 065
  11. EUPANTOL [Concomitant]
     Route: 065
  12. ALFUZOSIN HCL [Concomitant]
     Route: 065

REACTIONS (2)
  - CONFUSIONAL STATE [None]
  - OVERDOSE [None]
